FAERS Safety Report 12047105 (Version 4)
Quarter: 2016Q1

REPORT INFORMATION
  Report Type: Spontaneous
  Country: VE (occurrence: VE)
  Receive Date: 20160209
  Receipt Date: 20160318
  Transmission Date: 20160526
  Serious: Yes (Life-Threatening, Other)
  Sender: FDA-Public Use
  Company Number: VE-ORION CORPORATION ORION PHARMA-ENTC2015-0612

PATIENT
  Age: 66 Year
  Sex: Male

DRUGS (5)
  1. MIRAPEX ER [Concomitant]
     Active Substance: PRAMIPEXOLE DIHYDROCHLORIDE
     Route: 065
     Dates: start: 2010
  2. FLUOXETINE [Concomitant]
     Active Substance: FLUOXETINE HYDROCHLORIDE
     Route: 065
     Dates: start: 201601
  3. JUMEX [Concomitant]
     Active Substance: SELEGILINE HYDROCHLORIDE
     Route: 065
  4. STALEVO [Suspect]
     Active Substance: CARBIDOPA\ENTACAPONE\LEVODOPA
     Indication: PARKINSON^S DISEASE
     Dosage: STRENGTH: 150 MG
     Route: 048
     Dates: start: 2010, end: 201510
  5. MIRAPEX [Concomitant]
     Active Substance: PRAMIPEXOLE DIHYDROCHLORIDE
     Route: 065
     Dates: start: 2011

REACTIONS (13)
  - Dizziness [Recovered/Resolved]
  - Feeling abnormal [Unknown]
  - Activities of daily living impaired [Unknown]
  - Parkinson^s disease [Unknown]
  - Platelet count decreased [Recovering/Resolving]
  - Pain in extremity [Unknown]
  - Hypersomnia [Recovering/Resolving]
  - Dyskinesia [Not Recovered/Not Resolved]
  - Neuropathy peripheral [Not Recovered/Not Resolved]
  - Asthenia [Recovering/Resolving]
  - Feeling of despair [Unknown]
  - Eyelid disorder [Unknown]
  - Product supply issue [Unknown]

NARRATIVE: CASE EVENT DATE: 201510
